FAERS Safety Report 23173875 (Version 1)
Quarter: 2023Q4

REPORT INFORMATION
  Report Type: Spontaneous
  Country: CN (occurrence: CN)
  Receive Date: 20231111
  Receipt Date: 20231111
  Transmission Date: 20240110
  Serious: Yes (Hospitalization, Other)
  Sender: FDA-Public Use
  Company Number: None

PATIENT
  Age: 59 Year
  Sex: Male
  Weight: 69 kg

DRUGS (9)
  1. IFOSFAMIDE [Suspect]
     Active Substance: IFOSFAMIDE
     Indication: Neoplasm malignant
     Dosage: 3.5 G, ONE TIME IN ONE DAY, DILUTED WITH 500 ML OF 0.9% SODIUM CHLORIDE
     Route: 041
     Dates: start: 20190214, end: 20190219
  2. IFOSFAMIDE [Suspect]
     Active Substance: IFOSFAMIDE
     Indication: Ewing^s sarcoma
  3. SODIUM CHLORIDE [Suspect]
     Active Substance: SODIUM CHLORIDE
     Indication: Medication dilution
     Dosage: 500 ML, ONE TIME IN ONE DAY, STRENGTH: 0.9%, USED TO DILUTE IFOSFAMIDE 3.5 G
     Route: 041
     Dates: start: 20190214, end: 20190219
  4. SODIUM CHLORIDE [Suspect]
     Active Substance: SODIUM CHLORIDE
     Dosage: 500 ML, ONE TIME IN ONE DAY, STRENGTH: 0.9%, USED TO DILUTE ETOPOSIDE 0.1 G
     Route: 041
     Dates: start: 20190214, end: 20190219
  5. DEXTROSE [Suspect]
     Active Substance: DEXTROSE\DEXTROSE MONOHYDRATE
     Indication: Medication dilution
     Dosage: 100 ML, ONE TIME IN ONE DAY, STRENGTH: 5%, USED TO DILUTE PIRARUBICIN HYDROCHLORIDE 60 MG
     Route: 041
     Dates: start: 20190219, end: 20190219
  6. ETOPOSIDE [Suspect]
     Active Substance: ETOPOSIDE
     Indication: Neoplasm malignant
     Dosage: 0.1 G, ONE TIME IN ONE DAY, DILUTED WITH 500 ML OF 0.9% SODIUM CHLORIDE
     Route: 041
     Dates: start: 20190214, end: 20190219
  7. ETOPOSIDE [Suspect]
     Active Substance: ETOPOSIDE
     Indication: Ewing^s sarcoma
  8. PIRARUBICIN HYDROCHLORIDE [Suspect]
     Active Substance: PIRARUBICIN HYDROCHLORIDE
     Indication: Neoplasm malignant
     Dosage: 60 MG, ONE TIME IN ONE DAY, DILUTED WITH 100 ML OF 5% GLUCOSE
     Route: 041
     Dates: start: 20190219, end: 20190219
  9. PIRARUBICIN HYDROCHLORIDE [Suspect]
     Active Substance: PIRARUBICIN HYDROCHLORIDE
     Indication: Ewing^s sarcoma

REACTIONS (1)
  - Myelosuppression [Recovering/Resolving]

NARRATIVE: CASE EVENT DATE: 20190227
